FAERS Safety Report 15518369 (Version 2)
Quarter: 2018Q4

REPORT INFORMATION
  Report Type: Spontaneous
  Country: GB (occurrence: GB)
  Receive Date: 20181017
  Receipt Date: 20181113
  Transmission Date: 20190205
  Serious: Yes (Death, Congenital Anomaly, Other)
  Sender: FDA-Public Use
  Company Number: GB-MYLANLABS-2018M1077624

PATIENT

DRUGS (3)
  1. ISOSORBIDE MONONITRATE. [Suspect]
     Active Substance: ISOSORBIDE MONONITRATE
     Indication: ESSENTIAL HYPERTENSION
     Dosage: UNKNOWN
     Route: 064
  2. CHLORPROMAZINE. [Suspect]
     Active Substance: CHLORPROMAZINE
     Indication: DEPRESSION
     Dosage: INCREASING DOSES
     Route: 064
  3. SERTRALINE [Suspect]
     Active Substance: SERTRALINE HYDROCHLORIDE
     Indication: DEPRESSION
     Dosage: INCREASING DOSE
     Route: 064

REACTIONS (8)
  - Umbilical cord vascular disorder [Unknown]
  - Foetal gastrointestinal tract imaging abnormal [Unknown]
  - Foetal exposure during pregnancy [Recovered/Resolved]
  - Gastrointestinal malformation [Fatal]
  - Umbilical cord abnormality [Fatal]
  - Foetal death [Fatal]
  - Oligohydramnios [Fatal]
  - Foetal growth restriction [Unknown]
